FAERS Safety Report 8607845 (Version 2)
Quarter: 2013Q2

REPORT INFORMATION
  Report Type: Spontaneous
  Country: US (occurrence: US)
  Receive Date: 20120611
  Receipt Date: 20130617
  Transmission Date: 20140414
  Serious: Yes (Disabling)
  Sender: FDA-Public Use
  Company Number: US-ASTRAZENECA-2012SE35348

PATIENT
  Sex: Female

DRUGS (3)
  1. NEXIUM [Suspect]
     Indication: GASTROOESOPHAGEAL REFLUX DISEASE
     Route: 048
     Dates: start: 20120222
  2. LEXAPRO [Concomitant]
     Indication: DEPRESSION
     Dates: start: 20120710
  3. STEROIDS [Concomitant]

REACTIONS (7)
  - Sarcoidosis [Unknown]
  - Osteoporosis [Unknown]
  - Multiple fractures [Unknown]
  - Bone density decreased [Unknown]
  - Arthritis [Unknown]
  - Lung disorder [Unknown]
  - Osteopenia [Unknown]
